FAERS Safety Report 9292266 (Version 3)
Quarter: 2013Q2

REPORT INFORMATION
  Report Type: Report from Study
  Country: AU (occurrence: AU)
  Receive Date: 20130516
  Receipt Date: 20130603
  Transmission Date: 20140414
  Serious: Yes (Hospitalization, Disabling, Other)
  Sender: FDA-Public Use
  Company Number: PHHY2013AU045737

PATIENT
  Age: 23 Year
  Sex: Female
  Weight: 74 kg

DRUGS (7)
  1. CLOZARIL [Suspect]
     Indication: SCHIZOPHRENIA
     Dosage: 25 MG,
     Route: 048
     Dates: start: 20130430
  2. CLOZARIL [Suspect]
     Dosage: 25 MG
  3. CLOZARIL [Suspect]
     Dosage: UNK
  4. CLOZARIL [Suspect]
     Dosage: 25 MG.
     Route: 048
     Dates: end: 20130514
  5. AMISULPRIDE [Concomitant]
     Indication: SCHIZOPHRENIA
     Dosage: 300 MG, BID (WITH A 4 DAY CHANGEOVER)
  6. AMISULPRIDE [Concomitant]
     Dosage: 200 MG, TWO TIMES
     Dates: start: 20130115, end: 20130514
  7. AMISULPRIDE [Concomitant]
     Dosage: 400 MG, TWO TIMES A DAY.
     Route: 048
     Dates: start: 20130515

REACTIONS (12)
  - Sedation [Recovered/Resolved]
  - Tachycardia [Recovered/Resolved]
  - Influenza like illness [Recovered/Resolved]
  - Orthostatic hypotension [Recovered/Resolved]
  - Dizziness [Recovered/Resolved]
  - Electrocardiogram T wave inversion [Recovering/Resolving]
  - Electrocardiogram QT prolonged [Recovering/Resolving]
  - Nausea [Recovered/Resolved]
  - Psychotic disorder [Unknown]
  - Myocarditis [Unknown]
  - Fatigue [Unknown]
  - Malaise [Unknown]
